FAERS Safety Report 5397713-4 (Version None)
Quarter: 2007Q3

REPORT INFORMATION
  Report Type: 
  Country: None (occurrence: None)
  Receive Date: 20070723
  Receipt Date: 20070710
  Transmission Date: 20080115
  Serious: Yes (Death)
  Sender: FDA-Public Use
  Company Number: 158655ISR

PATIENT
  Age: 72 Year
  Sex: Male

DRUGS (2)
  1. PREDNISOLONE [Suspect]
     Indication: PROSTATE CANCER
     Dates: start: 20070522, end: 20070523
  2. MITOXANTRONE [Suspect]
     Indication: PROSTATE CANCER METASTATIC
     Dates: start: 20070522, end: 20070523

REACTIONS (1)
  - NEUTROPENIC COLITIS [None]
